FAERS Safety Report 9479172 (Version 2)
Quarter: 2013Q3

REPORT INFORMATION
  Report Type: Spontaneous
  Country: JP (occurrence: JP)
  Receive Date: 20130827
  Receipt Date: 20130827
  Transmission Date: 20140515
  Serious: Yes (Other)
  Sender: FDA-Public Use
  Company Number: JP-UCBSA-091507

PATIENT
  Age: 43 Year
  Sex: Male

DRUGS (8)
  1. E KEPPRA [Suspect]
     Indication: LENNOX-GASTAUT SYNDROME
     Dosage: STRENGTH: 250 MG
     Route: 048
     Dates: start: 20130515, end: 20130531
  2. HYDANTOL [Concomitant]
     Indication: LENNOX-GASTAUT SYNDROME
     Route: 048
     Dates: start: 20130515
  3. DEPAKENE-R [Concomitant]
     Indication: LENNOX-GASTAUT SYNDROME
     Route: 048
     Dates: start: 20130515
  4. MYSTAN [Concomitant]
     Indication: LENNOX-GASTAUT SYNDROME
     Route: 048
     Dates: start: 20130515
  5. NEULEPTIL [Concomitant]
     Indication: MENTAL RETARDATION
     Route: 048
     Dates: start: 20130515
  6. L-CARTIN [Concomitant]
     Indication: ISCHAEMIA
     Route: 048
     Dates: start: 20130515
  7. BENZALIN [Concomitant]
     Indication: INSOMNIA
     Route: 048
     Dates: start: 20130515
  8. HORIZON [Concomitant]
     Indication: LENNOX-GASTAUT SYNDROME
     Route: 048
     Dates: start: 20130515

REACTIONS (3)
  - Sedation [Recovered/Resolved]
  - Hypersomnia [Recovered/Resolved]
  - Poriomania [Recovered/Resolved]
